FAERS Safety Report 10878280 (Version 1)
Quarter: 2015Q1

REPORT INFORMATION
  Report Type: Spontaneous
  Country: JP (occurrence: JP)
  Receive Date: 20150302
  Receipt Date: 20150302
  Transmission Date: 20150721
  Serious: Yes (Other)
  Sender: FDA-Public Use
  Company Number: JP-PFIZER INC-2015071447

PATIENT
  Age: 58 Year
  Sex: Female

DRUGS (1)
  1. INLYTA [Suspect]
     Active Substance: AXITINIB
     Route: 048

REACTIONS (2)
  - Proteinuria [Recovered/Resolved]
  - Pancreatitis [Recovered/Resolved]
